FAERS Safety Report 25030342 (Version 3)
Quarter: 2025Q3

REPORT INFORMATION
  Report Type: Spontaneous
  Country: EU (occurrence: EU)
  Receive Date: 20250303
  Receipt Date: 20250803
  Transmission Date: 20251020
  Serious: Yes (Death, Other)
  Sender: ALEXION PHARMACEUTICALS
  Company Number: None

PATIENT
  Age: 76 Year
  Sex: Male
  Weight: 80 kg

DRUGS (2)
  1. IMFINZI [Suspect]
     Active Substance: DURVALUMAB
     Indication: Hepatocellular carcinoma
     Dates: start: 20250123, end: 20250123
  2. IMJUDO [Suspect]
     Active Substance: TREMELIMUMAB\TREMELIMUMAB-ACTL
     Dates: start: 20250123, end: 20250123

REACTIONS (4)
  - Myocarditis [Fatal]
  - Dyspnoea [Fatal]
  - Hyperhidrosis [Fatal]
  - Dilatation ventricular [Fatal]

NARRATIVE: CASE EVENT DATE: 20250208
